FAERS Safety Report 9709011 (Version 1)
Quarter: 2013Q4

REPORT INFORMATION
  Report Type: Spontaneous
  Country: GR (occurrence: None)
  Receive Date: 20131122
  Receipt Date: 20131122
  Transmission Date: 20140711
  Serious: Yes (Hospitalization)
  Sender: FDA-Public Use
  Company Number: 2013P1021229

PATIENT
  Age: 64 Year
  Sex: Male

DRUGS (1)
  1. RISPERIDONE [Suspect]
     Indication: PSYCHIATRIC SYMPTOM

REACTIONS (2)
  - Eosinophilic pneumonia acute [None]
  - Pleural effusion [None]
